FAERS Safety Report 12893865 (Version 1)
Quarter: 2016Q4

REPORT INFORMATION
  Report Type: Spontaneous
  Country: BE (occurrence: BE)
  Receive Date: 20161028
  Receipt Date: 20161028
  Transmission Date: 20170207
  Serious: Yes (Life-Threatening, Hospitalization, Other)
  Sender: FDA-Public Use
  Company Number: BE-BAYER-2016-188167

PATIENT
  Age: 19 Year
  Sex: Female
  Weight: 70 kg

DRUGS (1)
  1. JAYDESS 13,5 MG [Suspect]
     Active Substance: LEVONORGESTREL
     Dosage: 14 MCG/24HR, CONT
     Route: 015
     Dates: start: 20150616

REACTIONS (12)
  - Abortion spontaneous [Recovered/Resolved with Sequelae]
  - Pregnancy [Recovered/Resolved]
  - Retained placenta or membranes [None]
  - Uterine contractions during pregnancy [None]
  - Hypothermia [None]
  - Haemorrhage in pregnancy [None]
  - Shock [Recovered/Resolved with Sequelae]
  - Anaemia [Recovered/Resolved with Sequelae]
  - Haemorrhage in pregnancy [Recovered/Resolved with Sequelae]
  - Drug ineffective [None]
  - Psychological trauma [Recovered/Resolved with Sequelae]
  - Amenorrhoea [None]

NARRATIVE: CASE EVENT DATE: 201604
